FAERS Safety Report 7676862-1 (Version None)
Quarter: 2011Q3

REPORT INFORMATION
  Report Type: 
  Country: None (occurrence: None)
  Receive Date: 20110811
  Receipt Date: 20110804
  Transmission Date: 20111222
  Serious: Yes (Hospitalization)
  Sender: FDA-Public Use
  Company Number: FR-GENZYME-CAMP-1001803

PATIENT
  Age: 57 Year
  Sex: Female

DRUGS (5)
  1. CAMPATH [Suspect]
     Dosage: UNK
     Route: 042
  2. BACTRIM DS [Suspect]
     Indication: PRODUCT USED FOR UNKNOWN INDICATION
     Dosage: 0.428 DU, 3X/W ON MONDAYS TUESDAYS AND FRIDAYS
     Route: 048
     Dates: start: 20110406, end: 20110507
  3. CAMPATH [Suspect]
     Indication: MYCOSIS FUNGOIDES
     Dosage: UNK
     Route: 042
  4. CAMPATH [Suspect]
     Dosage: UNK
     Route: 042
     Dates: end: 20110502
  5. CAMPATH [Suspect]
     Indication: DIFFUSE LARGE B-CELL LYMPHOMA
     Dosage: UNK
     Route: 042
     Dates: start: 20110118

REACTIONS (4)
  - TOXIC SKIN ERUPTION [None]
  - DERMATITIS EXFOLIATIVE [None]
  - ADRENAL DISORDER [None]
  - SEPTIC SHOCK [None]
